FAERS Safety Report 7067942-2 (Version None)
Quarter: 2010Q4

REPORT INFORMATION
  Report Type: 
  Country: None (occurrence: None)
  Receive Date: 20101028
  Receipt Date: 20101021
  Transmission Date: 20110411
  Serious: Yes (Other)
  Sender: FDA-Public Use
  Company Number: DE-EISAI INC.-E2020-07796-CLI-DE

PATIENT
  Age: 75 Year
  Sex: Male

DRUGS (1)
  1. ARICEPT [Suspect]
     Route: 048
     Dates: start: 20100101, end: 20100519

REACTIONS (1)
  - PROSTATE CANCER [None]
